FAERS Safety Report 14217504 (Version 1)
Quarter: 2017Q4

REPORT INFORMATION
  Report Type: Spontaneous
  Country: US (occurrence: US)
  Receive Date: 20171123
  Receipt Date: 20171123
  Transmission Date: 20180321
  Serious: No
  Sender: FDA-Public Use
  Company Number: US-ASTRAZENECA-2017SF08990

PATIENT
  Age: 68 Year
  Sex: Female
  Weight: 128.4 kg

DRUGS (10)
  1. BUPROPION HYDROCHLORIDE. [Concomitant]
     Active Substance: BUPROPION HYDROCHLORIDE
     Indication: DEPRESSION
  2. FASLODEX [Suspect]
     Active Substance: FULVESTRANT
     Indication: BREAST CANCER FEMALE
     Dosage: 250MG/5ML, EVERY FOUR WEEKS
     Route: 030
     Dates: start: 201601
  3. ESCITALOPRAM OXALATE. [Concomitant]
     Active Substance: ESCITALOPRAM OXALATE
     Indication: DEPRESSION
  4. FLUTICASONE PROPIONATE. [Concomitant]
     Active Substance: FLUTICASONE PROPIONATE
     Indication: HYPERSENSITIVITY
  5. LEVOTHYROXINE SODIUM. [Concomitant]
     Active Substance: LEVOTHYROXINE SODIUM
     Indication: THYROID DISORDER
  6. METFORMIN HYDROCHLORIDE. [Concomitant]
     Active Substance: METFORMIN HYDROCHLORIDE
     Indication: DIABETES MELLITUS
  7. TRIAMTERENE-HCTZ [Concomitant]
     Active Substance: HYDROCHLOROTHIAZIDE\TRIAMTERENE
     Indication: HYPERTENSION
  8. IBRANCE [Suspect]
     Active Substance: PALBOCICLIB
     Indication: BREAST CANCER METASTATIC
     Dosage: 100MG CAPSULES, TAKE 1 CAPSULE AT NIGHT, 21 DAYS ON AND 7 DAYS OFF
     Route: 048
     Dates: start: 20170531, end: 20170621
  9. IBRANCE [Suspect]
     Active Substance: PALBOCICLIB
     Indication: BREAST CANCER METASTATIC
     Dosage: 100MG CAPSULES, TAKE 1 CAPSULE AT NIGHT, 21 DAYS ON AND 7 DAYS OFF
     Route: 048
     Dates: start: 20170628, end: 201707
  10. MELOXICAM. [Concomitant]
     Active Substance: MELOXICAM
     Indication: ARTHRITIS

REACTIONS (5)
  - Drug dose omission [Unknown]
  - Irritability [Recovering/Resolving]
  - Conversion disorder [Recovering/Resolving]
  - Energy increased [Unknown]
  - Crying [Recovering/Resolving]

NARRATIVE: CASE EVENT DATE: 20170621
